FAERS Safety Report 10075996 (Version 1)
Quarter: 2014Q2

REPORT INFORMATION
  Report Type: Spontaneous
  Country: US (occurrence: US)
  Receive Date: 20140414
  Receipt Date: 20140414
  Transmission Date: 20141212
  Serious: Yes (Other)
  Sender: FDA-Public Use
  Company Number: ALCN2014US002250

PATIENT
  Age: 73 Year
  Sex: Female

DRUGS (1)
  1. VIGAMOX [Suspect]
     Indication: EYE INFECTION BACTERIAL
     Dosage: 1 GTT, BID
     Route: 047
     Dates: start: 20140401, end: 20140406

REACTIONS (2)
  - Vision blurred [Not Recovered/Not Resolved]
  - Keratitis [Not Recovered/Not Resolved]
